FAERS Safety Report 12654443 (Version 1)
Quarter: 2016Q3

REPORT INFORMATION
  Report Type: Spontaneous
  Country: US (occurrence: None)
  Receive Date: 20160815
  Receipt Date: 20160815
  Transmission Date: 20161109
  Serious: Yes (Life-Threatening, Disabling)
  Sender: FDA-Public Use
  Company Number: None

PATIENT
  Age: 18 Year
  Sex: Female
  Weight: 47.63 kg

DRUGS (2)
  1. LEVAQUIN [Suspect]
     Active Substance: LEVOFLOXACIN
     Indication: SINUSITIS
     Route: 048
  2. LEVAQUIN [Suspect]
     Active Substance: LEVOFLOXACIN
     Indication: URINARY TRACT INFECTION
     Route: 048

REACTIONS (8)
  - Confusional state [None]
  - Psychotic disorder [None]
  - Tremor [None]
  - Hypokinesia [None]
  - Hallucination, auditory [None]
  - Hypertension [None]
  - Aphasia [None]
  - Tachycardia [None]

NARRATIVE: CASE EVENT DATE: 20090601
